FAERS Safety Report 10780247 (Version 4)
Quarter: 2016Q3

REPORT INFORMATION
  Report Type: Spontaneous
  Country: US (occurrence: US)
  Receive Date: 20150210
  Receipt Date: 20160902
  Transmission Date: 20161109
  Serious: No
  Sender: FDA-Public Use
  Company Number: US-PFIZER INC-2015054085

PATIENT
  Sex: Female

DRUGS (3)
  1. LYRICA [Suspect]
     Active Substance: PREGABALIN
     Dosage: 100 MG, UNK
  2. LYRICA [Suspect]
     Active Substance: PREGABALIN
     Dosage: 150 MG, UNK
  3. LYRICA [Suspect]
     Active Substance: PREGABALIN
     Dosage: UNK

REACTIONS (8)
  - Influenza [Unknown]
  - Intentional product misuse [Unknown]
  - Reaction to drug excipients [Unknown]
  - Swollen tongue [Unknown]
  - Malaise [Unknown]
  - Feeling abnormal [Unknown]
  - Food poisoning [Unknown]
  - Vomiting [Unknown]

NARRATIVE: CASE EVENT DATE: 20160827
